APPROVED DRUG PRODUCT: E-Z-HD
Active Ingredient: BARIUM SULFATE
Strength: 98%
Dosage Form/Route: FOR SUSPENSION;ORAL
Application: N208036 | Product #001
Applicant: BRACCO DIAGNOSTICS INC
Approved: Jan 11, 2016 | RLD: Yes | RS: Yes | Type: RX